FAERS Safety Report 11178981 (Version 2)
Quarter: 2015Q2

REPORT INFORMATION
  Report Type: Spontaneous
  Country: US (occurrence: None)
  Receive Date: 20150513
  Receipt Date: 20150526
  Transmission Date: 20150821
  Serious: No
  Sender: FDA-Public Use
  Company Number: US-145647

PATIENT
  Age: 56 Year
  Sex: Female
  Weight: 122.3 kg

DRUGS (1)
  1. BOTULISM ANTITOXIN [Suspect]
     Active Substance: BOTULISM ANTITOXIN
     Indication: BOTULISM
     Dosage: INTRAVENOUS (NOT OTHERWISE SPECIFIED)
     Route: 042
     Dates: start: 20150426, end: 20150426

REACTIONS (2)
  - Erythema [None]
  - Feeling hot [None]

NARRATIVE: CASE EVENT DATE: 20150426
